FAERS Safety Report 5345919-2 (Version None)
Quarter: 2007Q2

REPORT INFORMATION
  Report Type: 
  Country: None (occurrence: None)
  Receive Date: 20070605
  Receipt Date: 20070530
  Transmission Date: 20071010
  Serious: Yes (Other)
  Sender: FDA-Public Use
  Company Number: A0653937A

PATIENT
  Age: 20 Year
  Sex: Female
  Weight: 59.1 kg

DRUGS (2)
  1. BUPROPION HYDROCHLORIDE [Suspect]
     Indication: SMOKING CESSATION THERAPY
     Dosage: 150MG TWICE PER DAY
     Route: 048
  2. ZYRTEC [Concomitant]
     Indication: MULTIPLE ALLERGIES

REACTIONS (9)
  - AGITATION [None]
  - ANGER [None]
  - CRYING [None]
  - DYSPHONIA [None]
  - EMOTIONAL DISORDER [None]
  - MANIA [None]
  - MOUTH INJURY [None]
  - PERSONALITY CHANGE [None]
  - WEIGHT DECREASED [None]
